FAERS Safety Report 19824277 (Version 5)
Quarter: 2022Q1

REPORT INFORMATION
  Report Type: Spontaneous
  Country: JP (occurrence: JP)
  Receive Date: 20210913
  Receipt Date: 20220222
  Transmission Date: 20220424
  Serious: Yes (Death, Hospitalization, Other)
  Sender: FDA-Public Use
  Company Number: NVSJ2021JP013526

PATIENT
  Age: 96 Year
  Sex: Female

DRUGS (1)
  1. NEORAL [Suspect]
     Active Substance: CYCLOSPORINE
     Indication: Papuloerythroderma of Ofuji
     Dosage: 50 MG, QD
     Route: 048
     Dates: start: 20191024, end: 20200817

REACTIONS (3)
  - Cutaneous T-cell lymphoma [Fatal]
  - Generalised oedema [Fatal]
  - Product use in unapproved indication [Unknown]

NARRATIVE: CASE EVENT DATE: 20200814
